FAERS Safety Report 4654620-X (Version None)
Quarter: 2005Q2

REPORT INFORMATION
  Report Type: 
  Country: None (occurrence: None)
  Receive Date: 20050506
  Receipt Date: 20050426
  Transmission Date: 20051028
  Serious: Yes (Hospitalization, Other)
  Sender: FDA-Public Use
  Company Number: GBWYE617926APR05

PATIENT
  Sex: Female

DRUGS (7)
  1. ENBREL [Suspect]
     Indication: JUVENILE ARTHRITIS
     Route: 058
     Dates: start: 20021213, end: 20030828
  2. ENBREL [Suspect]
     Route: 058
     Dates: start: 20030829
  3. METHOTREXATE [Suspect]
     Route: 058
     Dates: start: 19941201, end: 20040117
  4. FOLIC ACID [Concomitant]
     Indication: JUVENILE ARTHRITIS
     Route: 048
  5. NAPROXEN [Concomitant]
     Route: 048
     Dates: start: 19931201
  6. PREDNISOLONE [Concomitant]
     Dosage: UNKNOWN
     Route: 042
     Dates: start: 20031007
  7. PREDNISOLONE [Concomitant]
     Dosage: UNKNOWN
     Route: 048
     Dates: start: 20031010

REACTIONS (2)
  - DENTAL TREATMENT [None]
  - LIVER FUNCTION TEST ABNORMAL [None]
